FAERS Safety Report 12194599 (Version 20)
Quarter: 2021Q4

REPORT INFORMATION
  Report Type: Report from Study
  Country: CA (occurrence: CA)
  Receive Date: 20160321
  Receipt Date: 20211209
  Transmission Date: 20220303
  Serious: Yes (Hospitalization, Other)
  Sender: FDA-Public Use
  Company Number: PHHY2014CA109642

PATIENT
  Sex: Female

DRUGS (8)
  1. SANDOSTATIN [Suspect]
     Active Substance: OCTREOTIDE ACETATE
     Indication: Neuroendocrine tumour
     Dosage: 50 UG, ONCE/SINGLE (TEST DOSE)
     Route: 058
     Dates: start: 20140718, end: 20140718
  2. SANDOSTATIN [Suspect]
     Active Substance: OCTREOTIDE ACETATE
  3. SANDOSTATIN [Suspect]
     Active Substance: OCTREOTIDE ACETATE
  4. SANDOSTATIN LAR DEPOT [Suspect]
     Active Substance: OCTREOTIDE ACETATE
     Indication: Neuroendocrine tumour
     Dosage: 30 MG, QMO (EVERY 4 WEEKS)
     Route: 030
     Dates: start: 20140729, end: 20170302
  5. SANDOSTATIN LAR DEPOT [Suspect]
     Active Substance: OCTREOTIDE ACETATE
     Dosage: 50 MG, QMO (EVERY 4 WEEKS)
     Route: 030
     Dates: start: 20170331
  6. SANDOSTATIN LAR DEPOT [Suspect]
     Active Substance: OCTREOTIDE ACETATE
     Dosage: 60 MG, QMO
     Route: 030
     Dates: start: 20140729
  7. CIPRO [Concomitant]
     Active Substance: CIPROFLOXACIN HYDROCHLORIDE
     Indication: Product used for unknown indication
     Dosage: UNK
     Route: 065
  8. ZOMETA [Concomitant]
     Active Substance: ZOLEDRONIC ACID
     Indication: Product used for unknown indication
     Dosage: UNK, Q3MO (Q3 MONTHS)
     Route: 065

REACTIONS (30)
  - Intestinal stenosis [Unknown]
  - Small intestinal obstruction [Recovered/Resolved]
  - Abdominal pain [Recovered/Resolved]
  - Hiatus hernia [Recovered/Resolved]
  - Chest injury [Unknown]
  - Rib fracture [Unknown]
  - Discomfort [Unknown]
  - Musculoskeletal chest pain [Unknown]
  - Diabetes mellitus [Unknown]
  - Influenza like illness [Unknown]
  - Chronic obstructive pulmonary disease [Recovering/Resolving]
  - Dyspnoea [Recovering/Resolving]
  - Pain [Unknown]
  - Crying [Unknown]
  - Malaise [Unknown]
  - Weight decreased [Unknown]
  - Abdominal pain upper [Unknown]
  - Pruritus [Unknown]
  - Fatigue [Unknown]
  - Rash [Unknown]
  - Night sweats [Unknown]
  - Cough [Unknown]
  - Chills [Unknown]
  - Joint swelling [Unknown]
  - Blood pressure decreased [Unknown]
  - Diarrhoea [Unknown]
  - Abdominal discomfort [Recovering/Resolving]
  - Constipation [Recovering/Resolving]
  - Dyspepsia [Unknown]
  - Incorrect dose administered [Unknown]

NARRATIVE: CASE EVENT DATE: 20140101
